FAERS Safety Report 12679409 (Version 1)
Quarter: 2016Q3

REPORT INFORMATION
  Report Type: Spontaneous
  Country: US (occurrence: None)
  Receive Date: 20160823
  Receipt Date: 20160823
  Transmission Date: 20161109
  Serious: Yes (Hospitalization)
  Sender: FDA-Public Use
  Company Number: None

PATIENT
  Age: 58 Year
  Sex: Male

DRUGS (15)
  1. LIDOCAINE. [Concomitant]
     Active Substance: LIDOCAINE
  2. MIDODRINE [Concomitant]
     Active Substance: MIDODRINE
  3. MAGNESIUM SULFATE. [Concomitant]
     Active Substance: MAGNESIUM SULFATE
  4. CASPOFUNGIN [Concomitant]
     Active Substance: CASPOFUNGIN
  5. FOLIC ACID. [Concomitant]
     Active Substance: FOLIC ACID
  6. INSULIN ASPART [Concomitant]
     Active Substance: INSULIN ASPART
  7. LANSOPRAZOLE. [Concomitant]
     Active Substance: LANSOPRAZOLE
  8. MULTIVITAMIN [Concomitant]
     Active Substance: VITAMINS
  9. OXYCODONE [Concomitant]
     Active Substance: OXYCODONE
  10. SERTRALINE [Concomitant]
     Active Substance: SERTRALINE HYDROCHLORIDE
  11. TEMAZEPAM. [Concomitant]
     Active Substance: TEMAZEPAM
  12. GABAPENTIN. [Concomitant]
     Active Substance: GABAPENTIN
  13. AMIODARONE [Suspect]
     Active Substance: AMIODARONE
     Indication: ATRIAL FIBRILLATION
     Route: 048
     Dates: start: 20160626
  14. FERROUS SULFATE. [Concomitant]
     Active Substance: FERROUS SULFATE
  15. TRAZODONE [Concomitant]
     Active Substance: TRAZODONE HYDROCHLORIDE

REACTIONS (2)
  - Blood thyroid stimulating hormone increased [None]
  - Hypothyroidism [None]

NARRATIVE: CASE EVENT DATE: 20160715
